FAERS Safety Report 15795391 (Version 1)
Quarter: 2019Q1

REPORT INFORMATION
  Report Type: Spontaneous
  Country: CA (occurrence: CA)
  Receive Date: 20190107
  Receipt Date: 20190107
  Transmission Date: 20190417
  Serious: Yes (Death, Hospitalization, Other)
  Sender: FDA-Public Use
  Company Number: CA-TEVA-2019-CA-995019

PATIENT
  Age: 75 Year
  Sex: Male

DRUGS (2)
  1. DEXAMETHASONE. [Suspect]
     Active Substance: DEXAMETHASONE
     Indication: PRODUCT USED FOR UNKNOWN INDICATION
     Route: 065
  2. DARATUMUMAB [Suspect]
     Active Substance: DARATUMUMAB
     Indication: PLASMA CELL MYELOMA
     Route: 042

REACTIONS (8)
  - Diabetes mellitus [Fatal]
  - Plasma cell myeloma [Fatal]
  - Therapeutic product ineffective [Fatal]
  - Incorrect product administration duration [Fatal]
  - Infusion related reaction [Fatal]
  - Blood glucose increased [Fatal]
  - Inappropriate schedule of product administration [Fatal]
  - Tremor [Fatal]
